FAERS Safety Report 16420368 (Version 1)
Quarter: 2019Q2

REPORT INFORMATION
  Report Type: Spontaneous
  Country: RU (occurrence: RU)
  Receive Date: 20190612
  Receipt Date: 20190612
  Transmission Date: 20190711
  Serious: Yes (Death, Hospitalization)
  Sender: FDA-Public Use
  Company Number: RU-JNJFOC-20190607163

PATIENT
  Sex: Female
  Weight: 91 kg

DRUGS (14)
  1. TORASEMIDE [Concomitant]
     Active Substance: TORSEMIDE
     Indication: PULMONARY HYPERTENSION
     Route: 065
     Dates: start: 2016, end: 201805
  2. GASTROCOL [Concomitant]
     Route: 065
     Dates: start: 2018, end: 201808
  3. EZETIMIBE. [Concomitant]
     Active Substance: EZETIMIBE
     Indication: PULMONARY HYPERTENSION
     Route: 065
     Dates: start: 2016, end: 201808
  4. ALLOPURINOL. [Concomitant]
     Active Substance: ALLOPURINOL
     Route: 065
     Dates: start: 20180713, end: 201808
  5. AMLODIPINE [Concomitant]
     Active Substance: AMLODIPINE BESYLATE
     Indication: PULMONARY HYPERTENSION
     Route: 065
     Dates: start: 2016, end: 201709
  6. AMLODIPINE [Concomitant]
     Active Substance: AMLODIPINE BESYLATE
     Indication: PULMONARY HYPERTENSION
     Route: 065
     Dates: start: 201805, end: 201808
  7. FUROSEMIDE. [Concomitant]
     Active Substance: FUROSEMIDE
     Indication: PULMONARY HYPERTENSION
     Route: 065
     Dates: start: 20180719, end: 201808
  8. VEROSPIRON [Concomitant]
     Active Substance: SPIRONOLACTONE
     Indication: PULMONARY HYPERTENSION
     Route: 065
     Dates: start: 20180717, end: 201808
  9. XARELTO [Suspect]
     Active Substance: RIVAROXABAN
     Indication: PULMONARY HYPERTENSION
     Route: 048
     Dates: start: 201510, end: 201808
  10. LASIX [Concomitant]
     Active Substance: FUROSEMIDE
     Indication: PULMONARY HYPERTENSION
     Route: 065
     Dates: start: 20180711, end: 20180711
  11. SILDENAFIL. [Concomitant]
     Active Substance: SILDENAFIL
     Route: 065
     Dates: start: 201707, end: 201808
  12. TORASEMIDE [Concomitant]
     Active Substance: TORSEMIDE
     Indication: PULMONARY HYPERTENSION
     Route: 065
     Dates: start: 201805, end: 20180710
  13. LASIX [Concomitant]
     Active Substance: FUROSEMIDE
     Indication: PULMONARY HYPERTENSION
     Route: 065
     Dates: start: 20180712, end: 20180712
  14. OMEPRAZOLE. [Concomitant]
     Active Substance: OMEPRAZOLE
     Route: 065
     Dates: start: 201807, end: 201808

REACTIONS (2)
  - Pulmonary endarterectomy [Fatal]
  - Cardiac failure [Recovered/Resolved]

NARRATIVE: CASE EVENT DATE: 20180711
